FAERS Safety Report 6892916-1 (Version None)
Quarter: 2010Q3

REPORT INFORMATION
  Report Type: 
  Country: None (occurrence: None)
  Receive Date: 20100731
  Receipt Date: 20081116
  Transmission Date: 20110219
  Serious: No
  Sender: FDA-Public Use
  Company Number: US-PFIZER INC-2008100812

PATIENT
  Sex: Male

DRUGS (4)
  1. NORVASC [Suspect]
     Indication: HYPERTENSION
     Dates: start: 20080101, end: 20080101
  2. DEPAKOTE [Suspect]
     Indication: BIPOLAR DISORDER
     Route: 048
     Dates: start: 20010101
  3. PRINZIDE [Suspect]
     Indication: HYPERTENSION
     Dates: start: 20080701, end: 20080801
  4. PROPECIA [Concomitant]
     Indication: ALOPECIA

REACTIONS (3)
  - ALOPECIA [None]
  - INCREASED APPETITE [None]
  - WEIGHT INCREASED [None]
